FAERS Safety Report 14935817 (Version 1)
Quarter: 2018Q2

REPORT INFORMATION
  Report Type: Spontaneous
  Country: US (occurrence: US)
  Receive Date: 20180524
  Receipt Date: 20180524
  Transmission Date: 20180711
  Serious: No
  Sender: FDA-Public Use
  Company Number: US-GLAXOSMITHKLINE-US2018086353

PATIENT
  Age: 62 Year
  Sex: Female

DRUGS (1)
  1. EXCEDRIN MIGRAINE [Suspect]
     Active Substance: ACETAMINOPHEN\ASPIRIN\CAFFEINE
     Indication: MIGRAINE
     Dosage: 6 DF, QD (PILLS)
     Dates: start: 2015

REACTIONS (2)
  - Overdose [Unknown]
  - Gastrooesophageal reflux disease [Not Recovered/Not Resolved]
